FAERS Safety Report 12682730 (Version 1)
Quarter: 2016Q3

REPORT INFORMATION
  Report Type: Spontaneous
  Country: GB (occurrence: GB)
  Receive Date: 20160825
  Receipt Date: 20160825
  Transmission Date: 20161109
  Serious: Yes (Hospitalization, Other)
  Sender: FDA-Public Use
  Company Number: GB-BRISTOL-MYERS SQUIBB COMPANY-BMS-2016-068379

PATIENT
  Age: 57 Year
  Sex: Female
  Weight: 72.5 kg

DRUGS (1)
  1. OPDIVO [Suspect]
     Active Substance: NIVOLUMAB
     Indication: NON-SMALL CELL LUNG CANCER
     Route: 042

REACTIONS (5)
  - Pneumonitis [Unknown]
  - Drug eruption [Unknown]
  - Lower respiratory tract infection [Unknown]
  - Iatrogenic infection [Unknown]
  - Pain [Unknown]
